FAERS Safety Report 14316531 (Version 1)
Quarter: 2017Q4

REPORT INFORMATION
  Report Type: Spontaneous
  Country: US (occurrence: US)
  Receive Date: 20171222
  Receipt Date: 20171222
  Transmission Date: 20180321
  Serious: No
  Sender: FDA-Public Use
  Company Number: US-ASTRAZENECA-2017SF24019

PATIENT

DRUGS (1)
  1. PRILOSEC OTC [Suspect]
     Active Substance: OMEPRAZOLE MAGNESIUM
     Indication: HIATUS HERNIA
     Dosage: PROTONPUMPINHIBITORACIDREDUCERADULTTABNANOFLAVORSCENT42CT
     Route: 048
     Dates: start: 20171030, end: 20171104

REACTIONS (9)
  - Product use in unapproved indication [Unknown]
  - Hyperchlorhydria [Recovered/Resolved]
  - Dyspnoea [Recovered/Resolved]
  - Incorrect drug administration duration [Unknown]
  - Suspected counterfeit product [Unknown]
  - Dyspepsia [Recovered/Resolved]
  - Product quality issue [Unknown]
  - Drug ineffective [Recovered/Resolved]
  - Off label use [Unknown]
